FAERS Safety Report 8519399-X (Version None)
Quarter: 2012Q3

REPORT INFORMATION
  Report Type: 
  Country: None (occurrence: None)
  Receive Date: 20120718
  Receipt Date: 20120716
  Transmission Date: 20120928
  Serious: Yes (Hospitalization, Other)
  Sender: FDA-Public Use
  Company Number: US-TEVA-336548USA

PATIENT
  Sex: Male
  Weight: 109 kg

DRUGS (29)
  1. TREANDA [Suspect]
     Indication: MULTIPLE MYELOMA
     Route: 042
     Dates: start: 20100803, end: 20100804
  2. TREANDA [Suspect]
     Route: 042
     Dates: start: 20101207, end: 20110105
  3. DIMETICONE, ACTIVATED [Concomitant]
     Dates: start: 20110621
  4. TREANDA [Suspect]
     Route: 042
     Dates: start: 20100831, end: 20101027
  5. BECLOMETHASONE DIPROPIONATE [Concomitant]
     Dates: start: 20100101
  6. DIPHENHYDRAMINE HCL [Concomitant]
     Dates: start: 20100101
  7. PAMIDRONATE DISODIUM [Concomitant]
     Dates: start: 20100101
  8. PIOGLITAZONE [Concomitant]
     Dates: start: 20100101, end: 20100407
  9. ESOMEPRAZOLE MAGNESIUM [Concomitant]
     Dates: start: 20100101
  10. DEXAMETHASONE [Suspect]
     Indication: MULTIPLE MYELOMA
     Dates: start: 20100803, end: 20120410
  11. ATENOLOL [Concomitant]
     Dates: start: 20100101
  12. CELECOXIB [Concomitant]
     Dates: start: 20100101, end: 20100407
  13. METFORMIN HYDROCHLORIDE [Concomitant]
     Dates: start: 20100101
  14. STRESSTABS [Concomitant]
     Dates: start: 20100101
  15. CENTRUM [Concomitant]
     Dates: start: 20100101
  16. AMLODIPINE [Concomitant]
     Dates: start: 20110218
  17. TUCKS [Concomitant]
     Dates: start: 20100101
  18. LENALIDOMIDE [Suspect]
     Indication: MULTIPLE MYELOMA
     Dates: start: 20100803, end: 20120410
  19. HYDROCORTISONE [Concomitant]
     Route: 061
     Dates: start: 20100101
  20. FEXOFENADINE [Concomitant]
     Dates: start: 20100101
  21. METHYLCELLULOSE [Concomitant]
     Dates: start: 20100101
  22. WARFARIN SODIUM [Concomitant]
     Dates: start: 20100101
  23. LIBRAX [Concomitant]
     Dates: start: 20100101
  24. COLECALCIFEROL [Concomitant]
  25. NAFTIFINE HYDROCHLORIDE [Concomitant]
     Dates: start: 20100101
  26. ERTACZO [Concomitant]
  27. LEVOTHYROXINE SODIUM [Concomitant]
     Dates: start: 20100101
  28. LOPERAMIDE HCL [Concomitant]
     Dates: start: 20100101
  29. MINERAL OIL EMULSION [Concomitant]
     Dates: start: 20100101

REACTIONS (2)
  - POST PROCEDURAL BILE LEAK [None]
  - HEPATIC ENZYME INCREASED [None]
